FAERS Safety Report 10373709 (Version 1)
Quarter: 2014Q1

REPORT INFORMATION
  Report Type: Spontaneous
  Country: US (occurrence: None)
  Receive Date: 20140306
  Receipt Date: 20140306
  Transmission Date: 20141002
  Serious: Yes (Other)
  Sender: FDA-Public Use
  Company Number: 163-21880-13022861

PATIENT
  Age: 77 Year
  Sex: Female

DRUGS (18)
  1. REVLIMID (LENALIDOMIDE) (15 MILLIGRAM, CAPSULES) [Suspect]
     Indication: PLASMA CELL MYELOMA
     Route: 048
     Dates: start: 20110606
  2. LANTUS SOLOSTAR (INSULIN GLARGINE) [Concomitant]
  3. TOPROL XL (METOPROLOL SUCCINATE) (TABLETS) [Concomitant]
  4. NEXIUM DR (ESOMEPRAZOLE) (CAPSULES) [Concomitant]
  5. CYCLOBENZAPARINE (CYCLOBENZAPRINE) (TABLETS) [Concomitant]
  6. METOPROLOL SUCCINATE (TABLETS) [Concomitant]
  7. PROCRIT (ERYTHROPOIETIN) [Concomitant]
  8. RENA-VITE (NEPHROVITE) (TABLETS) [Concomitant]
  9. SOLU-CORTEF (HYDROCORTISONE SODIUM SUCCINATE) [Concomitant]
  10. HYDROCODON-ACETAMINOPHEN (VICODIN) [Concomitant]
  11. ASPIRIN (ACETYLSALICYLIC ACID) (CHEWABLE TABLET) [Concomitant]
  12. LUMIGAN (BIMATOPROST) (EYE DROPS) [Concomitant]
  13. ZOLPIDEM TARTRATE (TABLETS) [Concomitant]
  14. DEXAMETHASONE (TABLETS) [Concomitant]
  15. FUROSEMIDE (TABLETS) [Concomitant]
  16. PATANOL (OLOPATADINE HYDROCHLORIDE) (EAR DROPS) [Concomitant]
  17. LIPITOR (ATORVASTATIN) (TABLETS) [Concomitant]
  18. ZEMPLAR (PARICALCITOL) (CAPSULES) [Concomitant]

REACTIONS (4)
  - Mouth haemorrhage [None]
  - Thrombosis [None]
  - Skin discolouration [None]
  - Epistaxis [None]
